FAERS Safety Report 7852936 (Version 5)
Quarter: 2015Q3

REPORT INFORMATION
  Report Type: Spontaneous
  Country: US (occurrence: US)
  Receive Date: 20110311
  Receipt Date: 20150901
  Transmission Date: 20151125
  Serious: Yes (Hospitalization, Other)
  Sender: FDA-Public Use
  Company Number: US-BAYER-2011-019094

PATIENT
  Age: 29 Year
  Sex: Female
  Weight: 72.56 kg

DRUGS (9)
  1. MIRENA [Suspect]
     Active Substance: LEVONORGESTREL
     Indication: CONTRACEPTION
     Dosage: 20 MCG/24HR, CONT
     Route: 015
     Dates: start: 20101012, end: 20110225
  2. PRENATAL VITAMINS [Concomitant]
     Active Substance: VITAMINS
     Route: 048
  3. IBUPROFEN. [Concomitant]
     Active Substance: IBUPROFEN
  4. OXYCODONE [Concomitant]
     Active Substance: OXYCODONE
  5. LOESTRIN NOS [Concomitant]
     Active Substance: ETHINYL ESTRADIOL\NORETHINDRONE ACETATE
     Indication: ORAL CONTRACEPTION
     Dosage: UNK
     Dates: start: 201102
  6. SUMATRIPTAN SUCCINATE. [Concomitant]
     Active Substance: SUMATRIPTAN SUCCINATE
     Dosage: 100 MG, UNK
     Route: 048
     Dates: start: 20101227
  7. PROPANOLOL [Concomitant]
     Active Substance: PROPRANOLOL HYDROCHLORIDE
     Dosage: 20 MG, UNK
     Route: 048
     Dates: start: 20101124
  8. PROAIR HFA [Concomitant]
     Active Substance: ALBUTEROL SULFATE
     Dosage: 90 MCG/ACTUATION
     Dates: start: 20101205
  9. PROPANOLOL [Concomitant]
     Active Substance: PROPRANOLOL HYDROCHLORIDE
     Dosage: 20 MG, UNK
     Route: 048
     Dates: start: 20111124

REACTIONS (14)
  - Pelvic pain [None]
  - Procedural pain [None]
  - Device issue [None]
  - Amenorrhoea [Recovered/Resolved]
  - Abdominal pain lower [None]
  - Abdominal pain [None]
  - Abdominal distension [Unknown]
  - Suppressed lactation [Not Recovered/Not Resolved]
  - Uterine perforation [None]
  - Genital haemorrhage [None]
  - Pubic pain [None]
  - Injury [None]
  - Device dislocation [None]
  - Procedural pain [Not Recovered/Not Resolved]

NARRATIVE: CASE EVENT DATE: 20101012
